FAERS Safety Report 4455704-1 (Version None)
Quarter: 2004Q3

REPORT INFORMATION
  Report Type: 
  Country: None (occurrence: None)
  Receive Date: 20040917
  Receipt Date: 20040830
  Transmission Date: 20050211
  Serious: Yes (Other)
  Sender: FDA-Public Use
  Company Number: USA040876805

PATIENT
  Age: 59 Year
  Sex: Female
  Weight: 95 kg

DRUGS (7)
  1. FORTEO [Suspect]
     Indication: OSTEOPOROSIS
     Dosage: 20 UG DAY
     Dates: start: 20030101
  2. ATENOLOL [Concomitant]
  3. NEXIUM [Concomitant]
  4. SINGULAIR (MONTELUKAST) [Concomitant]
  5. ZYRTEC [Concomitant]
  6. CELEBREX [Concomitant]
  7. LIPITOR [Concomitant]

REACTIONS (1)
  - OESOPHAGEAL CARCINOMA [None]
